FAERS Safety Report 25009944 (Version 2)
Quarter: 2025Q3

REPORT INFORMATION
  Report Type: Report from Study
  Country: ZA (occurrence: ZA)
  Receive Date: 20250225
  Receipt Date: 20250810
  Transmission Date: 20251021
  Serious: Yes (Hospitalization)
  Sender: ALEXION PHARMACEUTICALS
  Company Number: ZA-AstraZeneca-CH-00809573A

PATIENT
  Age: 41 Year
  Sex: Female

DRUGS (9)
  1. BUDESONIDE\FORMOTEROL [Suspect]
     Active Substance: BUDESONIDE\FORMOTEROL
  2. MYPAID FORTE [Concomitant]
     Active Substance: ACETAMINOPHEN\IBUPROFEN
     Route: 065
  3. Hetripco [Concomitant]
     Route: 065
  4. Sinucon [Concomitant]
     Route: 065
  5. FLUTICASONE FUROATE [Concomitant]
     Active Substance: FLUTICASONE FUROATE
     Route: 065
  6. ALBUTEROL SULFATE [Concomitant]
     Active Substance: ALBUTEROL SULFATE
     Route: 065
  7. Andolex c [Concomitant]
     Route: 065
  8. DEMAZIN [Concomitant]
     Active Substance: CHLORPHENIRAMINE MALEATE\PHENYLPROPANOLAMINE HYDROCHLORIDE
     Route: 065
  9. Benylin four flu [Concomitant]
     Route: 065

REACTIONS (4)
  - Illness [Unknown]
  - Malaise [Unknown]
  - Asthma [Unknown]
  - Drug ineffective [Unknown]

NARRATIVE: CASE EVENT DATE: 20250114
